FAERS Safety Report 10202803 (Version 2)
Quarter: 2014Q3

REPORT INFORMATION
  Report Type: Spontaneous
  Country: DZ (occurrence: DZ)
  Receive Date: 20140528
  Receipt Date: 20140703
  Transmission Date: 20150326
  Serious: Yes (Death, Hospitalization)
  Sender: FDA-Public Use
  Company Number: DZ-ABBVIE-14P-003-1241167-00

PATIENT
  Age: 25 Year
  Sex: Female
  Weight: 40 kg

DRUGS (5)
  1. HUMIRA [Suspect]
     Active Substance: ADALIMUMAB
     Indication: COLITIS ULCERATIVE
     Dosage: 1 DOSE
     Route: 058
     Dates: start: 20121111, end: 20121111
  2. ROWASA [Concomitant]
     Active Substance: MESALAMINE
     Indication: COLITIS ULCERATIVE
     Route: 048
     Dates: start: 2010
  3. IMUREL [Concomitant]
     Active Substance: AZATHIOPRINE SODIUM
     Indication: COLITIS ULCERATIVE
     Route: 048
  4. HUMIRA [Suspect]
     Active Substance: ADALIMUMAB
     Route: 058
     Dates: end: 201308
  5. PRECORTYL [Concomitant]
     Indication: COLITIS ULCERATIVE
     Route: 048
     Dates: start: 2012

REACTIONS (4)
  - Drug ineffective [Fatal]
  - Postoperative hernia [Fatal]
  - Post procedural sepsis [Fatal]
  - Colectomy [Fatal]
